FAERS Safety Report 6443822-8 (Version None)
Quarter: 2009Q4

REPORT INFORMATION
  Report Type: 
  Country: None (occurrence: None)
  Receive Date: 20091117
  Receipt Date: 20091105
  Transmission Date: 20100525
  Serious: Yes (Other)
  Sender: FDA-Public Use
  Company Number: CA-GENENTECH-279458

PATIENT
  Sex: Female
  Weight: 87.302 kg

DRUGS (4)
  1. XOLAIR [Suspect]
     Indication: ASTHMA
     Dosage: 150 MG, 1/MONTH
     Route: 058
     Dates: start: 20080121
  2. XOLAIR [Suspect]
     Dosage: UNK
     Dates: start: 20080121
  3. ADVIL [Concomitant]
     Indication: DRUG USE FOR UNKNOWN INDICATION
  4. SINGULAIR [Concomitant]

REACTIONS (5)
  - HEART RATE INCREASED [None]
  - INFLUENZA [None]
  - PNEUMONIA [None]
  - RESPIRATORY DISORDER [None]
  - WHEEZING [None]
